FAERS Safety Report 16537961 (Version 3)
Quarter: 2019Q3

REPORT INFORMATION
  Report Type: Spontaneous
  Country: US (occurrence: US)
  Receive Date: 20190708
  Receipt Date: 20190724
  Transmission Date: 20191004
  Serious: Yes (Other)
  Sender: FDA-Public Use
  Company Number: US-SANOFI-AVENTIS-2010SA006759

PATIENT
  Age: 73 Year
  Sex: Male

DRUGS (8)
  1. LANTUS SOLOSTAR [Suspect]
     Active Substance: INSULIN GLARGINE
     Dosage: 10-15 UNITS
     Route: 058
  2. NOVOLOG [Concomitant]
     Active Substance: INSULIN ASPART
     Dosage: UNK
     Route: 065
  3. APIDRA [Concomitant]
     Active Substance: INSULIN GLULISINE
     Indication: TYPE 1 DIABETES MELLITUS
     Dosage: 10-15 UNITS, QD
     Route: 065
  4. LANTUS SOLOSTAR [Suspect]
     Active Substance: INSULIN GLARGINE
     Indication: TYPE 1 DIABETES MELLITUS
     Dosage: 17 U, HS
     Route: 058
     Dates: start: 20100126
  5. LANTUS SOLOSTAR [Suspect]
     Active Substance: INSULIN GLARGINE
     Dosage: 14 U, QD
     Route: 058
  6. LANTUS SOLOSTAR [Suspect]
     Active Substance: INSULIN GLARGINE
     Dosage: 15 U, HS
     Route: 058
  7. APIDRA [Concomitant]
     Active Substance: INSULIN GLULISINE
     Dosage: 13 UNITS IN THE MORNING, 6 UNITS AT LUNCH, 4-6 UNITS AT SUPPER, AND 3-5 UNITS AT BEDTIME
     Route: 065
  8. METFORMIN [Concomitant]
     Active Substance: METFORMIN HYDROCHLORIDE
     Indication: TYPE 1 DIABETES MELLITUS
     Route: 065

REACTIONS (18)
  - Hyperhidrosis [Not Recovered/Not Resolved]
  - Hypoglycaemia [Unknown]
  - Feeling abnormal [Unknown]
  - Hypothyroidism [Unknown]
  - Injection site bruising [Not Recovered/Not Resolved]
  - Blood glucose increased [Unknown]
  - Drug ineffective [Unknown]
  - Diabetes mellitus inadequate control [Unknown]
  - Chills [Not Recovered/Not Resolved]
  - Hormone level abnormal [Not Recovered/Not Resolved]
  - Nocturia [Not Recovered/Not Resolved]
  - Injection site nodule [Recovered/Resolved]
  - Expired product administered [Unknown]
  - Injection site atrophy [Unknown]
  - Hypoglycaemic unconsciousness [Unknown]
  - Blood glucose increased [Not Recovered/Not Resolved]
  - Blood glucose decreased [Unknown]
  - Blood glucose fluctuation [Unknown]

NARRATIVE: CASE EVENT DATE: 201001
